FAERS Safety Report 10263818 (Version 1)
Quarter: 2014Q2

REPORT INFORMATION
  Report Type: Spontaneous
  Country: GB (occurrence: GB)
  Receive Date: 20140627
  Receipt Date: 20140627
  Transmission Date: 20141212
  Serious: Yes (Other)
  Sender: FDA-Public Use
  Company Number: GB-ACCORD-024448

PATIENT
  Age: 48 Year
  Sex: Female
  Weight: 100 kg

DRUGS (6)
  1. AMLODIPINE [Suspect]
     Indication: PRODUCT USED FOR UNKNOWN INDICATION
     Dosage: 5 MG FROM AN UNKNOWN DATE TO 02-JUN-2014 AND 10 MG FROM 03-JUN-2014
     Dates: end: 20140613
  2. MELOXICAM [Concomitant]
  3. PARACETAMOL [Concomitant]
  4. LORATADINE [Concomitant]
     Dates: start: 20140412
  5. INDAPAMIDE/INDAPAMIDE HEMIHYDRATE [Concomitant]
  6. RANITIDINE [Concomitant]

REACTIONS (2)
  - Pain in extremity [Recovered/Resolved]
  - Oedema peripheral [Recovered/Resolved]
